FAERS Safety Report 9338481 (Version 1)
Quarter: 2013Q2

REPORT INFORMATION
  Report Type: Spontaneous
  Country: AU (occurrence: AU)
  Receive Date: 20130610
  Receipt Date: 20130610
  Transmission Date: 20140414
  Serious: Yes (Hospitalization, Other)
  Sender: FDA-Public Use
  Company Number: AU-VERTEX PHARMACEUTICALS INC-2013-006562

PATIENT
  Age: 60 Year
  Sex: Male
  Weight: 78 kg

DRUGS (11)
  1. INCIVO [Suspect]
     Indication: PRODUCT USED FOR UNKNOWN INDICATION
     Dosage: 750 MG, TID
     Route: 048
     Dates: start: 20130327, end: 20130522
  2. PEGINTERFERON ALFA [Suspect]
     Indication: PRODUCT USED FOR UNKNOWN INDICATION
     Dosage: 120 ?G, UNK
     Route: 065
     Dates: start: 20130327, end: 20130522
  3. RIBAVIRIN [Suspect]
     Indication: PRODUCT USED FOR UNKNOWN INDICATION
     Dosage: 1000 MG, QD
     Route: 065
     Dates: start: 20130327, end: 20130522
  4. OLANZAPINE [Concomitant]
     Dosage: 10 MG, QD
     Route: 065
  5. DOCUSATE SODIUM\SENNOSIDES [Concomitant]
     Dosage: UNK
     Route: 065
  6. NIFEDIPINE [Concomitant]
     Dosage: 21 MG, QD
     Route: 065
  7. MAGNESIUM [Concomitant]
     Dosage: UNK
     Route: 065
  8. PARACETAMOL [Concomitant]
     Dosage: 1 G, QD
     Route: 065
  9. PANTOPRAZOLE [Concomitant]
     Dosage: 40 MG, QD
     Route: 065
  10. TEMAZEPAM [Concomitant]
     Dosage: 20 MG, QD
     Route: 065
  11. PREDNISOLONE [Concomitant]
     Dosage: 50 MG, QD
     Route: 065

REACTIONS (15)
  - Renal failure acute [Recovered/Resolved]
  - Drug reaction with eosinophilia and systemic symptoms [Recovered/Resolved]
  - Anaemia [Unknown]
  - Oedema [Unknown]
  - Delirium [Unknown]
  - Malaise [Unknown]
  - Lethargy [Unknown]
  - Weight increased [Unknown]
  - Dyspnoea [Unknown]
  - Poor quality sleep [Unknown]
  - Chills [Unknown]
  - Tremor [Unknown]
  - Cough [Unknown]
  - Muscular weakness [Unknown]
  - Decreased appetite [Unknown]
